FAERS Safety Report 5884810-X (Version None)
Quarter: 2008Q3

REPORT INFORMATION
  Report Type: 
  Country: None (occurrence: None)
  Receive Date: 20080916
  Receipt Date: 20080903
  Transmission Date: 20090109
  Serious: Yes (Hospitalization)
  Sender: FDA-Public Use
  Company Number: US-ELI_LILLY_AND_COMPANY-US200809000727

PATIENT
  Sex: Female

DRUGS (2)
  1. FORTEO [Suspect]
     Dates: start: 20070101, end: 20080709
  2. FORTEO [Suspect]
     Dates: start: 20080828

REACTIONS (4)
  - DEPRESSION [None]
  - PROCEDURAL PAIN [None]
  - SPINAL DECOMPRESSION [None]
  - SPINAL OPERATION [None]
